FAERS Safety Report 12824079 (Version 1)
Quarter: 2016Q4

REPORT INFORMATION
  Report Type: Spontaneous
  Country: US (occurrence: US)
  Receive Date: 20161006
  Receipt Date: 20161006
  Transmission Date: 20170207
  Serious: No
  Sender: FDA-Public Use
  Company Number: US-ACTELION-A-US2016-143284

PATIENT
  Age: 40 Year
  Sex: Female

DRUGS (2)
  1. TRIAMCINOLONE ACETATE [Concomitant]
     Active Substance: TRIAMCINOLONE ACETONIDE
  2. VALCHLOR [Suspect]
     Active Substance: MECHLORETHAMINE
     Indication: MYCOSIS FUNGOIDES
     Dosage: EVERY OTHER DAY
     Route: 061
     Dates: start: 20160712

REACTIONS (1)
  - Drug hypersensitivity [Unknown]
